FAERS Safety Report 12839995 (Version 1)
Quarter: 2016Q4

REPORT INFORMATION
  Report Type: Spontaneous
  Country: US (occurrence: US)
  Receive Date: 20161012
  Receipt Date: 20161012
  Transmission Date: 20170207
  Serious: Yes (Other)
  Sender: FDA-Public Use
  Company Number: US-PFIZER INC-2016474063

PATIENT
  Age: 17 Year
  Sex: Female
  Weight: 44 kg

DRUGS (1)
  1. DEPO-PROVERA [Suspect]
     Active Substance: MEDROXYPROGESTERONE ACETATE
     Indication: CONTRACEPTION
     Dosage: ONE INJECTION ADMINISTERED IN THE RIGHT ARM TIME ONE
     Dates: start: 201607, end: 201607

REACTIONS (22)
  - Syncope [Unknown]
  - Blood potassium decreased [Unknown]
  - Paraesthesia [Unknown]
  - Oropharyngeal pain [Unknown]
  - Ear discomfort [Unknown]
  - White blood cell count decreased [Unknown]
  - Oesophageal disorder [Unknown]
  - Chest pain [Unknown]
  - Asthenia [Unknown]
  - Abdominal pain upper [Unknown]
  - Back pain [Not Recovered/Not Resolved]
  - Dizziness [Not Recovered/Not Resolved]
  - Gait disturbance [Unknown]
  - Arthralgia [Not Recovered/Not Resolved]
  - Alopecia [Not Recovered/Not Resolved]
  - Fall [Unknown]
  - Vomiting [Recovering/Resolving]
  - Dyspnoea [Unknown]
  - Dysphagia [Recovering/Resolving]
  - Eating disorder [Recovering/Resolving]
  - Weight decreased [Not Recovered/Not Resolved]
  - Activities of daily living impaired [Recovering/Resolving]

NARRATIVE: CASE EVENT DATE: 201608
